FAERS Safety Report 9152289 (Version 1)
Quarter: 2013Q1

REPORT INFORMATION
  Report Type: Spontaneous
  Country: US (occurrence: US)
  Receive Date: 20130308
  Receipt Date: 20130308
  Transmission Date: 20140127
  Serious: Yes (Other)
  Sender: FDA-Public Use
  Company Number: GXBR2013US000680

PATIENT
  Sex: Female

DRUGS (1)
  1. ALPRAZOLAM TABLETS USP [Suspect]
     Indication: MUSCULOSKELETAL CHEST PAIN
     Dosage: UNK DF, UNK

REACTIONS (6)
  - Pulmonary mass [Unknown]
  - Blepharospasm [Unknown]
  - Swelling [Unknown]
  - Diverticulitis [Unknown]
  - Somnolence [Unknown]
  - Musculoskeletal chest pain [Unknown]
